FAERS Safety Report 5694642-3 (Version None)
Quarter: 2008Q2

REPORT INFORMATION
  Report Type: 
  Country: None (occurrence: None)
  Receive Date: 20080404
  Receipt Date: 20080324
  Transmission Date: 20081010
  Serious: Yes (Congenital Anomaly)
  Sender: FDA-Public Use
  Company Number: A0681915A

PATIENT
  Sex: Male

DRUGS (7)
  1. PAROXETINE HCL [Suspect]
     Indication: ANXIETY
     Dosage: 10MG PER DAY
     Dates: start: 20050815
  2. PAXIL CR [Suspect]
     Indication: ANXIETY
     Dosage: 12.5MG AS REQUIRED
     Dates: start: 20050901
  3. PAXIL [Suspect]
     Indication: ANXIETY
     Dosage: 10MG PER DAY
     Dates: start: 20050920
  4. VITAMIN TAB [Concomitant]
  5. ALBUTEROL [Concomitant]
  6. ADVAIR HFA [Concomitant]
     Indication: ASTHMA
  7. ZANTAC [Concomitant]

REACTIONS (4)
  - ATRIAL SEPTAL DEFECT [None]
  - CARDIAC FAILURE CONGESTIVE [None]
  - DRUG EXPOSURE DURING PREGNANCY [None]
  - VENTRICULAR SEPTAL DEFECT [None]
